FAERS Safety Report 18047289 (Version 2)
Quarter: 2020Q3

REPORT INFORMATION
  Report Type: Report from Study
  Country: JP (occurrence: JP)
  Receive Date: 20200720
  Receipt Date: 20200921
  Transmission Date: 20201103
  Serious: Yes (Death, Hospitalization)
  Sender: FDA-Public Use
  Company Number: JP-UCBSA-2020028182

PATIENT
  Age: 62 Year
  Sex: Male

DRUGS (9)
  1. TEGRETOL [Concomitant]
     Active Substance: CARBAMAZEPINE
     Indication: PARTIAL SEIZURES WITH SECONDARY GENERALISATION
     Dosage: 400 MG DAILY
     Route: 048
     Dates: end: 20191025
  2. E KEPPRA [Concomitant]
     Active Substance: LEVETIRACETAM
     Indication: PARTIAL SEIZURES WITH SECONDARY GENERALISATION
     Dosage: 1000 MG DAILY
     Route: 048
     Dates: end: 20191025
  3. LAMICTAL [Concomitant]
     Active Substance: LAMOTRIGINE
     Indication: PARTIAL SEIZURES WITH SECONDARY GENERALISATION
     Dosage: 100 MG DAILY
     Route: 048
     Dates: end: 20191025
  4. NORVASC [Concomitant]
     Active Substance: AMLODIPINE BESYLATE
     Indication: PRODUCT USED FOR UNKNOWN INDICATION
     Dosage: 2.5 MG DAILY
     Route: 048
     Dates: end: 20191025
  5. LACOSAMIDE. [Suspect]
     Active Substance: LACOSAMIDE
     Indication: PARTIAL SEIZURES WITH SECONDARY GENERALISATION
     Dosage: 50 MILLIGRAM, 2X/DAY (BID)
     Route: 048
     Dates: start: 20181213, end: 20191025
  6. DEPAKENE?R [Concomitant]
     Active Substance: VALPROATE SODIUM
     Indication: PARTIAL SEIZURES WITH SECONDARY GENERALISATION
     Dosage: 600 MG DAILY
     Route: 048
     Dates: end: 20191025
  7. DEPAS [ETIZOLAM] [Concomitant]
     Active Substance: ETIZOLAM
     Indication: PRODUCT USED FOR UNKNOWN INDICATION
     Dosage: 1 MG DAILY
     Route: 048
     Dates: end: 20191025
  8. LEVOTOMIN [LEVOMEPROMAZINE MALEATE] [Concomitant]
     Active Substance: LEVOMEPROMAZINE
     Indication: PRODUCT USED FOR UNKNOWN INDICATION
     Dosage: 5 MG DAILY
     Route: 048
     Dates: end: 20191025
  9. TRAMCET [Concomitant]
     Active Substance: ACETAMINOPHEN\TRAMADOL
     Indication: PRODUCT USED FOR UNKNOWN INDICATION
     Dosage: UNK
     Route: 048
     Dates: end: 20191025

REACTIONS (2)
  - Renal impairment [Unknown]
  - Gastritis haemorrhagic [Fatal]

NARRATIVE: CASE EVENT DATE: 20190927
